FAERS Safety Report 18563501 (Version 1)
Quarter: 2020Q4

REPORT INFORMATION
  Report Type: Report from Study
  Country: US (occurrence: US)
  Receive Date: 20201201
  Receipt Date: 20201201
  Transmission Date: 20210114
  Serious: Yes (Other)
  Sender: FDA-Public Use
  Company Number: US-BRISTOL-MYERS SQUIBB COMPANY-BMS-2020-100388

PATIENT
  Age: 73 Year
  Sex: Female

DRUGS (1)
  1. APIXABAN [Suspect]
     Active Substance: APIXABAN
     Indication: CEREBROVASCULAR ACCIDENT PROPHYLAXIS
     Dosage: UNK
     Route: 065

REACTIONS (6)
  - Urethral haemorrhage [Recovered/Resolved]
  - Chromaturia [Unknown]
  - Blood urine present [Unknown]
  - Emotional distress [Unknown]
  - Nephrolithiasis [Unknown]
  - Vaginal infection [Unknown]

NARRATIVE: CASE EVENT DATE: 2020
